FAERS Safety Report 12727113 (Version 1)
Quarter: 2016Q3

REPORT INFORMATION
  Report Type: Spontaneous
  Country: US (occurrence: US)
  Receive Date: 20160909
  Receipt Date: 20160909
  Transmission Date: 20161109
  Serious: Yes (Other)
  Sender: FDA-Public Use
  Company Number: US-AMGEN-USASP2016114239

PATIENT
  Age: 54 Year
  Sex: Female

DRUGS (1)
  1. PROLIA [Suspect]
     Active Substance: DENOSUMAB
     Indication: OSTEOPOROSIS POSTMENOPAUSAL
     Dosage: UNK
     Route: 065
     Dates: start: 20160819

REACTIONS (18)
  - Oral mucosal erythema [Unknown]
  - Respiratory disorder [Recovered/Resolved]
  - Throat irritation [Unknown]
  - Lymphadenopathy [Not Recovered/Not Resolved]
  - Lip swelling [Unknown]
  - Fatigue [Unknown]
  - Head discomfort [Recovering/Resolving]
  - Ear pain [Unknown]
  - Ear discomfort [Unknown]
  - Chills [Unknown]
  - Hypoacusis [Unknown]
  - Chest discomfort [Not Recovered/Not Resolved]
  - Rash erythematous [Not Recovered/Not Resolved]
  - Oedema peripheral [Unknown]
  - Rash pruritic [Unknown]
  - Urticaria [Unknown]
  - Swelling face [Not Recovered/Not Resolved]
  - Oral pain [Unknown]

NARRATIVE: CASE EVENT DATE: 201608
